FAERS Safety Report 7202694-4 (Version None)
Quarter: 2010Q4

REPORT INFORMATION
  Report Type: 
  Country: None (occurrence: None)
  Receive Date: 20101229
  Receipt Date: 20101221
  Transmission Date: 20110411
  Serious: Yes (Hospitalization)
  Sender: FDA-Public Use
  Company Number: US-GENZYME-THYM-1001909

PATIENT
  Sex: Male
  Weight: 76.3 kg

DRUGS (2)
  1. THYMOGLOBULIN [Suspect]
     Indication: KIDNEY TRANSPLANT REJECTION
     Dosage: 125 MG, UNK
     Route: 042
     Dates: start: 20100724, end: 20100730
  2. VELCADE [Concomitant]
     Indication: KIDNEY TRANSPLANT REJECTION
     Dosage: 1.3 MG/M2, UNK
     Route: 042
     Dates: start: 20100725, end: 20100827

REACTIONS (3)
  - ABDOMINAL PAIN [None]
  - DEVICE RELATED INFECTION [None]
  - MUSCULAR WEAKNESS [None]
